FAERS Safety Report 17634468 (Version 3)
Quarter: 2021Q1

REPORT INFORMATION
  Report Type: Report from Study
  Country: DE (occurrence: DE)
  Receive Date: 20200406
  Receipt Date: 20210317
  Transmission Date: 20210419
  Serious: Yes (Hospitalization, Other)
  Sender: FDA-Public Use
  Company Number: NVSC2020DE021822

PATIENT
  Sex: Female
  Weight: 61.7 kg

DRUGS (3)
  1. KISQALI [Suspect]
     Active Substance: RIBOCICLIB
     Indication: BREAST CANCER METASTATIC
     Dosage: 600 MG, ADMINISTRATION SCHEME 21 DAYS INTAKE, 7 DAYS PAUSE
     Route: 048
     Dates: start: 20191210, end: 20200206
  2. KISQALI [Suspect]
     Active Substance: RIBOCICLIB
     Dosage: 600 MG, QD (21 DAYS INTAKE, 7 DAYS PAUSE)
     Route: 048
     Dates: start: 20200214, end: 20200303
  3. LETROZOLE. [Suspect]
     Active Substance: LETROZOLE
     Indication: BREAST CANCER METASTATIC
     Dosage: 2.5 MG, QD
     Route: 048
     Dates: start: 20191210

REACTIONS (11)
  - Conjunctivitis [Recovered/Resolved]
  - Balance disorder [Recovered/Resolved]
  - Vertigo [Recovered/Resolved]
  - Chest pain [Recovered/Resolved with Sequelae]
  - Brachial plexopathy [Recovered/Resolved with Sequelae]
  - Pneumonia aspiration [Recovered/Resolved]
  - Arthralgia [Recovered/Resolved with Sequelae]
  - Acute respiratory failure [Recovered/Resolved]
  - Neck pain [Recovered/Resolved with Sequelae]
  - Paralysis [Recovered/Resolved with Sequelae]
  - Vomiting [Recovered/Resolved]

NARRATIVE: CASE EVENT DATE: 20191218
